FAERS Safety Report 7801737-4 (Version None)
Quarter: 2011Q4

REPORT INFORMATION
  Report Type: 
  Country: None (occurrence: None)
  Receive Date: 20111004
  Receipt Date: 20100923
  Transmission Date: 20120403
  Serious: Yes (Death)
  Sender: FDA-Public Use
  Company Number: 2010GW000694

PATIENT
  Age: 85 Year
  Sex: Male
  Weight: 96.6162 kg

DRUGS (5)
  1. MAXAIR [Suspect]
     Indication: RESTRICTIVE PULMONARY DISEASE
     Dosage: 0.2 MG;PRN;INH
     Route: 055
     Dates: start: 20040101, end: 20060101
  2. ALBUTEROL [Concomitant]
  3. OXYGEN [Concomitant]
  4. SPIRIVA [Concomitant]
  5. ADVAIR DISKUS 100/50 [Concomitant]

REACTIONS (3)
  - DEATH [None]
  - CARDIAC DISORDER [None]
  - COUGH [None]
